FAERS Safety Report 7232044-9 (Version None)
Quarter: 2011Q1

REPORT INFORMATION
  Report Type: 
  Country: None (occurrence: None)
  Receive Date: 20110118
  Receipt Date: 20110111
  Transmission Date: 20110831
  Serious: Yes (Hospitalization)
  Sender: FDA-Public Use
  Company Number: DE-ELI_LILLY_AND_COMPANY-DE201012005095

PATIENT
  Age: 42 Year
  Sex: Female
  Weight: 81 kg

DRUGS (18)
  1. BYETTA [Suspect]
     Indication: TYPE 2 DIABETES MELLITUS
     Dosage: 10 UG, EACH MORNING
     Dates: start: 20090101, end: 20100512
  2. PANTAZOL [Concomitant]
     Indication: PROPHYLAXIS AGAINST GASTROINTESTINAL ULCER
     Dosage: 20 MG, DAILY (1/D)
     Route: 048
     Dates: start: 20100201
  3. PREDNISOLONE [Concomitant]
     Dosage: 1 MG, DAILY (1/D)
     Route: 048
  4. ENBREL [Concomitant]
     Indication: RHEUMATOID ARTHRITIS
     Dosage: UNK, 2/D
     Route: 058
     Dates: start: 20090101, end: 20100429
  5. TORASEMID [Concomitant]
     Indication: HYPERTENSION
     Dosage: 5 MG, DAILY (1/D)
     Route: 048
     Dates: start: 20090101
  6. GLIMEPIRID [Concomitant]
     Indication: TYPE 2 DIABETES MELLITUS
     Dosage: 3 MG, 2/D
     Route: 048
     Dates: start: 20080101, end: 20100512
  7. PREDNISOLONE [Concomitant]
     Indication: RHEUMATOID ARTHRITIS
     Dosage: 2 MG, DAILY (1/D)
     Route: 048
     Dates: start: 20090101
  8. FORTZAAR [Concomitant]
     Indication: HYPERTENSION
     Dosage: 1 D/F, DAILY (1/D)
     Route: 048
     Dates: start: 20090101
  9. BYETTA [Suspect]
     Dosage: 5 UG, EACH EVENING
     Route: 058
     Dates: start: 20090101, end: 20100512
  10. ARAVA [Concomitant]
     Dosage: UNK, UNKNOWN
     Dates: start: 20100511
  11. MAGNESIUM [Concomitant]
     Dates: start: 20090101
  12. DICLOFENAC SODIUM [Concomitant]
     Indication: RHEUMATOID ARTHRITIS
     Dosage: 75 MG, 2/D
     Route: 048
     Dates: start: 20100201
  13. TILIDIN [Concomitant]
     Indication: PAIN
     Dosage: 1 D/F, DAILY (1/D)
     Route: 048
     Dates: start: 20100401
  14. LANTUS [Concomitant]
  15. APSOMOL [Concomitant]
     Indication: ASTHMA
     Dosage: 200 UG, AS NEEDED
     Route: 055
     Dates: start: 20050101
  16. CALCIMAGON [Concomitant]
     Indication: OSTEOPOROSIS PROPHYLAXIS
     Dosage: 500 MG, DAILY (1/D)
     Route: 048
     Dates: start: 20090101
  17. ARAVA [Concomitant]
     Indication: RHEUMATOID ARTHRITIS
     Dosage: 10 MG, DAILY (1/D)
     Route: 048
     Dates: start: 20090101, end: 20100430
  18. ACTRAPID                           /00030501/ [Concomitant]
     Dates: start: 20100512

REACTIONS (1)
  - PANCREATITIS ACUTE [None]
